FAERS Safety Report 10079323 (Version 2)
Quarter: 2014Q2

REPORT INFORMATION
  Report Type: Spontaneous
  Country: US (occurrence: US)
  Receive Date: 20140415
  Receipt Date: 20140619
  Transmission Date: 20141212
  Serious: Yes (Other)
  Sender: FDA-Public Use
  Company Number: US-AMGEN-USASP2014026094

PATIENT
  Sex: Female

DRUGS (2)
  1. XGEVA [Suspect]
     Indication: BONE LOSS
     Dosage: UNK
     Route: 065
  2. ARIMIDEX [Concomitant]
     Dosage: FOR 3 WEEKS

REACTIONS (4)
  - Thoracic vertebral fracture [Unknown]
  - Neoplasm malignant [Unknown]
  - Hypoaesthesia [Unknown]
  - Adverse drug reaction [Unknown]
